FAERS Safety Report 15230692 (Version 2)
Quarter: 2018Q3

REPORT INFORMATION
  Report Type: Spontaneous
  Country: US (occurrence: US)
  Receive Date: 20180802
  Receipt Date: 20180918
  Transmission Date: 20181010
  Serious: No
  Sender: FDA-Public Use
  Company Number: US-SA-2018SA208082

PATIENT
  Age: 66 Year
  Sex: Male

DRUGS (6)
  1. CICLOPIROX. [Concomitant]
     Active Substance: CICLOPIROX
  2. DUPIXENT [Suspect]
     Active Substance: DUPILUMAB
     Indication: DERMATITIS ATOPIC
     Dosage: 300 MG, QOW
     Route: 058
     Dates: start: 20180628
  3. HYDROXYCHLOROQUINE [Concomitant]
     Active Substance: HYDROXYCHLOROQUINE
  4. ELIQUIS [Concomitant]
     Active Substance: APIXABAN
  5. SIMVASTATIN. [Concomitant]
     Active Substance: SIMVASTATIN
  6. KETOCONAZOLE. [Concomitant]
     Active Substance: KETOCONAZOLE

REACTIONS (2)
  - Headache [Not Recovered/Not Resolved]
  - Dermatitis [Not Recovered/Not Resolved]
